FAERS Safety Report 4860413-0 (Version None)
Quarter: 2005Q4

REPORT INFORMATION
  Report Type: 
  Country: None (occurrence: None)
  Receive Date: 20051215
  Receipt Date: 20051205
  Transmission Date: 20060501
  Serious: Yes (Other)
  Sender: FDA-Public Use
  Company Number: 2005104845

PATIENT
  Age: 64 Year
  Sex: Female
  Weight: 63.5036 kg

DRUGS (5)
  1. NEURONTIN [Suspect]
     Indication: NEURALGIA
     Dosage: 100 MG (100 MG, 1 IN 1 D), ORAL
     Route: 048
     Dates: start: 20020101
  2. NEURONTIN [Suspect]
     Indication: NEURALGIA
     Dosage: ORAL
     Route: 048
     Dates: start: 20050701
  3. SYNTHROID [Concomitant]
  4. METHADONE HCL [Concomitant]
  5. NEXIUM [Concomitant]

REACTIONS (11)
  - BACK PAIN [None]
  - CONDITION AGGRAVATED [None]
  - CYSTITIS [None]
  - DRUG INEFFECTIVE [None]
  - HYPERHIDROSIS [None]
  - NAUSEA [None]
  - NEURALGIA [None]
  - PHARMACEUTICAL PRODUCT COMPLAINT [None]
  - RENAL DISORDER [None]
  - THYROID GLAND CANCER [None]
  - WRONG TECHNIQUE IN DRUG USAGE PROCESS [None]
